FAERS Safety Report 14564014 (Version 2)
Quarter: 2018Q3

REPORT INFORMATION
  Report Type: Report from Study
  Country: US (occurrence: US)
  Receive Date: 20180222
  Receipt Date: 20180829
  Transmission Date: 20181010
  Serious: Yes (Death, Other)
  Sender: FDA-Public Use
  Company Number: US-BAYER-2018-029772

PATIENT
  Age: 64 Year
  Sex: Female

DRUGS (1)
  1. BETASERON [Suspect]
     Active Substance: INTERFERON BETA-1B
     Indication: RELAPSING-REMITTING MULTIPLE SCLEROSIS
     Dosage: 8 MIU, QOD
     Route: 058
     Dates: start: 20070330

REACTIONS (5)
  - Chronic obstructive pulmonary disease [Fatal]
  - Pulmonary embolism [Fatal]
  - Staphylococcal sepsis [Fatal]
  - Pneumonia [Fatal]
  - Respiratory failure [Fatal]
